FAERS Safety Report 14699343 (Version 1)
Quarter: 2018Q1

REPORT INFORMATION
  Report Type: Spontaneous
  Country: US (occurrence: US)
  Receive Date: 20180326
  Receipt Date: 20180326
  Transmission Date: 20180509
  Serious: No
  Sender: FDA-Public Use
  Company Number: US-ALEMBIC PHARMACUETICALS LIMITED-2017SCAL000431

PATIENT

DRUGS (9)
  1. MEPROBAMATE. [Suspect]
     Active Substance: MEPROBAMATE
     Indication: NERVOUS SYSTEM DISORDER
     Dosage: 50 MG, QD
     Route: 048
     Dates: start: 2015, end: 201705
  2. MEPROBAMATE. [Suspect]
     Active Substance: MEPROBAMATE
     Indication: NERVOUS SYSTEM DISORDER
     Dosage: UNK
  3. ESTROGEN [Concomitant]
     Active Substance: ESTROGENS
     Indication: NERVOUS SYSTEM DISORDER
     Dosage: UNK
  4. IRON [Suspect]
     Active Substance: IRON
     Indication: BLOOD IRON DECREASED
     Dosage: UNK
  5. BUSPAR [Concomitant]
     Active Substance: BUSPIRONE HYDROCHLORIDE
     Indication: PRODUCT USED FOR UNKNOWN INDICATION
     Dosage: 0.5 MG, UNK
  6. ACIDOPHILUS [Concomitant]
     Active Substance: LACTOBACILLUS ACIDOPHILUS
     Indication: PRODUCT USED FOR UNKNOWN INDICATION
     Dosage: UNK
  7. BENAZEPRIL [Concomitant]
     Active Substance: BENAZEPRIL HYDROCHLORIDE
     Indication: PRODUCT USED FOR UNKNOWN INDICATION
     Dosage: 10 MG, UNK
  8. ATIVAN [Concomitant]
     Active Substance: LORAZEPAM
     Indication: PRODUCT USED FOR UNKNOWN INDICATION
     Dosage: UNK
  9. ADVIL [Concomitant]
     Active Substance: IBUPROFEN
     Indication: PRODUCT USED FOR UNKNOWN INDICATION
     Dosage: 4 A DAY

REACTIONS (11)
  - Wrong technique in product usage process [Unknown]
  - Blood iron decreased [Not Recovered/Not Resolved]
  - Condition aggravated [Unknown]
  - Diarrhoea [Recovered/Resolved]
  - Somnolence [Recovered/Resolved]
  - Intentional underdose [Unknown]
  - Abdominal pain lower [Recovered/Resolved]
  - Abdominal pain [Recovered/Resolved]
  - Constipation [Unknown]
  - Bladder disorder [Unknown]
  - Nervous system disorder [Unknown]

NARRATIVE: CASE EVENT DATE: 201601
